FAERS Safety Report 4975307-X (Version None)
Quarter: 2006Q2

REPORT INFORMATION
  Report Type: 
  Country: None (occurrence: None)
  Receive Date: 20060411
  Receipt Date: 20060330
  Transmission Date: 20061013
  Serious: Yes (Disabling)
  Sender: FDA-Public Use
  Company Number: T05-JPN-04481-01

PATIENT
  Age: 80 Year
  Sex: Female
  Weight: 56.7 kg

DRUGS (8)
  1. MEMANTINE HCL [Suspect]
     Indication: DEMENTIA ALZHEIMER'S TYPE
     Dosage: 20 MG QD PO
     Route: 048
     Dates: start: 20050623, end: 20051026
  2. MEMANTINE HCL [Suspect]
     Indication: DEMENTIA ALZHEIMER'S TYPE
     Dates: start: 20050428, end: 20050622
  3. LATANOPROST [Concomitant]
  4. DORZOLAMIDE HYDROCHLORIDE [Concomitant]
  5. TIMOLOL MALEATE [Concomitant]
  6. LOXOPROFEN SODIUM [Concomitant]
  7. TEPRENONE [Concomitant]
  8. MECOBALAMIN [Concomitant]

REACTIONS (3)
  - LYMPHADENOPATHY [None]
  - METASTASES TO BONE [None]
  - METASTASES TO LYMPH NODES [None]
